FAERS Safety Report 13150896 (Version 2)
Quarter: 2020Q4

REPORT INFORMATION
  Report Type: Report from Study
  Country: PL (occurrence: PL)
  Receive Date: 20170125
  Receipt Date: 20201202
  Transmission Date: 20210113
  Serious: Yes (Other)
  Sender: FDA-Public Use
  Company Number: PL-JNJFOC-20170121084

PATIENT
  Age: 32 Year
  Sex: Female

DRUGS (3)
  1. RIVAROXABAN [Suspect]
     Active Substance: RIVAROXABAN
     Indication: EMBOLISM VENOUS
     Route: 048
  2. APIXABAN [Concomitant]
     Active Substance: APIXABAN
     Indication: MENORRHAGIA
     Dosage: 5 MG, BID
     Route: 065
  3. ENOXAPARIN [Concomitant]
     Active Substance: ENOXAPARIN
     Indication: MENORRHAGIA
     Dosage: 60 MG, BID
     Route: 058

REACTIONS (2)
  - Deep vein thrombosis [Recovered/Resolved]
  - Menorrhagia [Recovering/Resolving]
